FAERS Safety Report 6498301-9 (Version None)
Quarter: 2009Q4

REPORT INFORMATION
  Report Type: 
  Country: None (occurrence: None)
  Receive Date: 20091127
  Receipt Date: 20090812
  Transmission Date: 20100525
  Serious: Yes (Hospitalization)
  Sender: FDA-Public Use
  Company Number: 287935

PATIENT
  Age: 52 Year
  Sex: Female

DRUGS (1)
  1. NOVOLOG [Suspect]
     Indication: INSULIN-REQUIRING TYPE 2 DIABETES MELLITUS
     Dosage: IU, QD SLIDING SCALE, SUBCUTANEOUS
     Route: 058
     Dates: start: 20090510

REACTIONS (1)
  - BLOOD GLUCOSE INCREASED [None]
